FAERS Safety Report 15437910 (Version 1)
Quarter: 2018Q3

REPORT INFORMATION
  Report Type: Report from Study
  Country: None (occurrence: BR)
  Receive Date: 20180928
  Receipt Date: 20180928
  Transmission Date: 20181010
  Serious: Yes (Other)
  Sender: FDA-Public Use
  Company Number: BR-ABBVIE-18K-020-2498210-00

PATIENT
  Age: 54 Year
  Sex: Female
  Weight: 90 kg

DRUGS (3)
  1. HUMIRA [Suspect]
     Active Substance: ADALIMUMAB
     Indication: RHEUMATOID ARTHRITIS
     Route: 058
     Dates: start: 20160610
  2. AMITRIPTYLINE [Concomitant]
     Active Substance: AMITRIPTYLINE
     Indication: ARTHRALGIA
  3. LOSARTAN. [Concomitant]
     Active Substance: LOSARTAN
     Indication: HYPERTENSION

REACTIONS (13)
  - Arthralgia [Unknown]
  - Weight decreased [Not Recovered/Not Resolved]
  - Depressed mood [Unknown]
  - Cyst [Unknown]
  - Loss of personal independence in daily activities [Unknown]
  - Depression [Not Recovered/Not Resolved]
  - Rheumatoid arthritis [Unknown]
  - Hypertension [Not Recovered/Not Resolved]
  - Arthritis [Unknown]
  - Peripheral swelling [Unknown]
  - Finger deformity [Unknown]
  - Cyst [Unknown]
  - Drug ineffective [Unknown]

NARRATIVE: CASE EVENT DATE: 201803
